FAERS Safety Report 15575610 (Version 1)
Quarter: 2018Q4

REPORT INFORMATION
  Report Type: Other
  Country: DE (occurrence: DE)
  Receive Date: 20181101
  Receipt Date: 20181101
  Transmission Date: 20190205
  Serious: Yes (Other)
  Sender: FDA-Public Use
  Company Number: DE-ACTELION-A-CH2018-180863

PATIENT
  Age: 49 Year
  Sex: Female

DRUGS (1)
  1. MIGLUSTAT. [Suspect]
     Active Substance: MIGLUSTAT
     Indication: NIEMANN-PICK DISEASE
     Route: 048

REACTIONS (11)
  - Cognitive disorder [Unknown]
  - Polyneuropathy [Unknown]
  - Oedema [Unknown]
  - Multiple sclerosis [Unknown]
  - White matter lesion [Unknown]
  - Pain [Unknown]
  - CSF oligoclonal band present [Unknown]
  - Cerebral atrophy [Unknown]
  - Dysphagia [Unknown]
  - Gait disturbance [Recovering/Resolving]
  - CSF immunoglobulin increased [Unknown]
